FAERS Safety Report 4650144-4 (Version None)
Quarter: 2005Q2

REPORT INFORMATION
  Report Type: 
  Country: None (occurrence: None)
  Receive Date: 20050331
  Receipt Date: 20050105
  Transmission Date: 20051028
  Serious: No
  Sender: FDA-Public Use
  Company Number: 05P-163-0285479-00

PATIENT
  Age: 66 Year
  Sex: Female

DRUGS (11)
  1. HUMIRA [Suspect]
     Indication: RHEUMATOID ARTHRITIS
     Dosage: 40 MG, 1 IN 2 WK, SUBCUTANEOUS
     Route: 058
     Dates: start: 20041001, end: 20041227
  2. VICODIN [Concomitant]
  3. SULFASALAZINE [Concomitant]
  4. MELOXICAM [Concomitant]
  5. FISH OIL [Concomitant]
  6. PREDNISONE TAB [Concomitant]
  7. HYDROCHLOROTHIAZIDE [Concomitant]
  8. CHRONDROITIN [Concomitant]
  9. ATORVASTATIN CALCIUM [Concomitant]
  10. ALENDRONATE SODIUM [Concomitant]
  11. CALCIUM WITH VITAMIN D [Concomitant]

REACTIONS (1)
  - RASH [None]
